FAERS Safety Report 13780488 (Version 2)
Quarter: 2017Q3

REPORT INFORMATION
  Report Type: Spontaneous
  Country: PL (occurrence: PL)
  Receive Date: 20170724
  Receipt Date: 20170804
  Transmission Date: 20171127
  Serious: No
  Sender: FDA-Public Use
  Company Number: PL-009507513-1707POL005279

PATIENT
  Sex: Male

DRUGS (1)
  1. ELOCOM [Suspect]
     Active Substance: MOMETASONE FUROATE
     Indication: ERYTHEMA
     Dosage: UNK
     Dates: start: 20170713

REACTIONS (6)
  - Lethargy [Recovered/Resolved]
  - Oropharyngeal pain [Recovered/Resolved]
  - Incorrect route of drug administration [Unknown]
  - Burning sensation [Recovered/Resolved]
  - Discomfort [Recovered/Resolved]
  - Product use in unapproved indication [Unknown]

NARRATIVE: CASE EVENT DATE: 20170713
